FAERS Safety Report 10170097 (Version 1)
Quarter: 2014Q2

REPORT INFORMATION
  Report Type: Spontaneous
  Country: US (occurrence: US)
  Receive Date: 20140513
  Receipt Date: 20140513
  Transmission Date: 20141212
  Serious: Yes (Hospitalization)
  Sender: FDA-Public Use
  Company Number: US-GLAXOSMITHKLINE-A1072143A

PATIENT
  Age: 34 Year
  Sex: Female

DRUGS (1)
  1. VENTOLIN [Suspect]
     Indication: ASTHMA
     Route: 055

REACTIONS (6)
  - Loss of consciousness [Unknown]
  - Road traffic accident [Unknown]
  - Asthma [Unknown]
  - Dehydration [Unknown]
  - Feeling abnormal [Unknown]
  - Malaise [Unknown]
